FAERS Safety Report 7151219-0 (Version None)
Quarter: 2010Q4

REPORT INFORMATION
  Report Type: 
  Country: None (occurrence: None)
  Receive Date: 20101210
  Receipt Date: 20101130
  Transmission Date: 20110411
  Serious: Yes (Other)
  Sender: FDA-Public Use
  Company Number: US-JNJFOC-20100806392

PATIENT
  Sex: Female
  Weight: 80.74 kg

DRUGS (13)
  1. REMICADE [Suspect]
     Indication: CROHN'S DISEASE
     Dosage: MORE THAN 10 YEARS AGO
     Route: 042
  2. REMICADE [Suspect]
     Route: 042
  3. ADVAIR DISKUS 100/50 [Concomitant]
     Dosage: DOSE 50 - 100 MCG
     Route: 048
  4. ASPIRIN [Concomitant]
     Route: 048
  5. AZATHIOPRINE [Concomitant]
     Route: 048
  6. CALCIUM [Concomitant]
     Route: 048
  7. FISH OIL [Concomitant]
     Route: 048
  8. FOLIC ACID [Concomitant]
     Route: 048
  9. LISINOPRIL AND HYDROCHLOROTHIAZIDE [Concomitant]
     Dosage: DOSE 25MG/20MG
     Route: 048
  10. IRON [Concomitant]
     Route: 048
  11. MULTI-VITAMINS [Concomitant]
     Route: 048
  12. PRILOSEC [Concomitant]
     Route: 048
  13. BENADRYL [Concomitant]
     Indication: PREMEDICATION
     Route: 048

REACTIONS (2)
  - LUNG NEOPLASM [None]
  - PNEUMONITIS [None]
